FAERS Safety Report 7266036-0 (Version None)
Quarter: 2011Q1

REPORT INFORMATION
  Report Type: 
  Country: None (occurrence: None)
  Receive Date: 20110131
  Receipt Date: 20100430
  Transmission Date: 20110831
  Serious: No
  Sender: FDA-Public Use
  Company Number: US-ABBOTT-10P-163-0647786-00

PATIENT
  Sex: Male

DRUGS (2)
  1. LUPRON DEPOT [Suspect]
     Indication: PROSTATE CANCER STAGE I
     Dosage: TWO THREE-MONTH INJECTIONS
     Route: 050
     Dates: end: 20091201
  2. EXTERNAL RADIATION THERAPY [Concomitant]
     Indication: PRODUCT USED FOR UNKNOWN INDICATION

REACTIONS (4)
  - ARTHRALGIA [None]
  - HYPERTENSION [None]
  - INSOMNIA [None]
  - WEIGHT LOSS POOR [None]
